FAERS Safety Report 9450638 (Version 2)
Quarter: 2013Q4

REPORT INFORMATION
  Report Type: Spontaneous
  Country: FR (occurrence: FR)
  Receive Date: 20130809
  Receipt Date: 20131118
  Transmission Date: 20140711
  Serious: Yes (Hospitalization)
  Sender: FDA-Public Use
  Company Number: FR-SANOFI-AVENTIS-2013SA077984

PATIENT
  Age: 58 Year
  Sex: Male

DRUGS (4)
  1. KERLONE [Suspect]
     Indication: PRODUCT USED FOR UNKNOWN INDICATION
     Route: 048
  2. SPECIAFOLDINE [Suspect]
     Indication: PRODUCT USED FOR UNKNOWN INDICATION
     Dosage: ONCE EVERY WEEK
     Route: 048
  3. NOVATREX [Suspect]
     Indication: RHEUMATIC DISORDER
     Dosage: 5 TABS A WEEK
     Route: 048
     Dates: start: 201304, end: 201307
  4. PREDNISONE [Suspect]
     Indication: RHEUMATIC DISORDER
     Route: 048
     Dates: start: 201304

REACTIONS (4)
  - Lung disorder [Recovered/Resolved]
  - Pyrexia [Recovered/Resolved]
  - Pain [Recovered/Resolved]
  - Cough [Recovered/Resolved]
